FAERS Safety Report 24296837 (Version 1)
Quarter: 2024Q3

REPORT INFORMATION
  Report Type: Spontaneous
  Country: CN (occurrence: CN)
  Receive Date: 20240909
  Receipt Date: 20240909
  Transmission Date: 20241016
  Serious: Yes (Hospitalization, Other)
  Sender: SANOFI AVENTIS
  Company Number: CN-SA-2024SA253769

PATIENT
  Age: 26 Year
  Sex: Male
  Weight: 66 kg

DRUGS (3)
  1. CLOPIDOGREL BISULFATE [Suspect]
     Active Substance: CLOPIDOGREL BISULFATE
     Indication: Antiplatelet therapy
     Dosage: 75 MG, EVERY DAY
     Route: 048
     Dates: start: 20240804, end: 20240812
  2. ENOXAPARIN SODIUM [Suspect]
     Active Substance: ENOXAPARIN SODIUM
     Indication: Splenic vein thrombosis
     Dosage: 2000 IU, Q12H
     Route: 058
     Dates: start: 20240730, end: 20240806
  3. RIVAROXABAN [Suspect]
     Active Substance: RIVAROXABAN
     Indication: Thrombosis
     Dosage: 10 MG, EVERY DAY
     Route: 048
     Dates: start: 20240807, end: 20240812

REACTIONS (4)
  - Portal vein thrombosis [Recovering/Resolving]
  - Thrombocytosis [Recovering/Resolving]
  - Hepatic function abnormal [Recovering/Resolving]
  - Haemoperitoneum [Recovered/Resolved]

NARRATIVE: CASE EVENT DATE: 20240812
